FAERS Safety Report 7387674-0 (Version None)
Quarter: 2011Q1

REPORT INFORMATION
  Report Type: 
  Country: None (occurrence: None)
  Receive Date: 20110331
  Receipt Date: 20110321
  Transmission Date: 20110831
  Serious: Yes (Life-Threatening, Hospitalization, Other)
  Sender: FDA-Public Use
  Company Number: GR-ABBOTT-11P-066-0713037-00

PATIENT
  Sex: Female

DRUGS (4)
  1. HUMIRA [Concomitant]
     Dosage: WEEK 2 PRIOR TO ENROLLMENT
     Route: 058
  2. HUMIRA [Concomitant]
     Route: 058
     Dates: end: 20090601
  3. HUMIRA [Suspect]
     Indication: CROHN'S DISEASE
     Dosage: MAINTENANCE REGIMEN
     Route: 058
     Dates: start: 20090601
  4. HUMIRA [Concomitant]
     Dosage: PRIOR TO STUDY ENROLLMENT
     Route: 058
     Dates: start: 20080520, end: 20080520

REACTIONS (1)
  - MALIGNANT MELANOMA [None]
